FAERS Safety Report 5415843-5 (Version None)
Quarter: 2007Q3

REPORT INFORMATION
  Report Type: 
  Country: None (occurrence: None)
  Receive Date: 20070815
  Receipt Date: 20070806
  Transmission Date: 20080115
  Serious: Yes (Other)
  Sender: FDA-Public Use
  Company Number: US-PFIZER INC-2007065379

PATIENT
  Sex: Female
  Weight: 54.545 kg

DRUGS (3)
  1. XALATAN [Suspect]
     Indication: INTRAOCULAR PRESSURE INCREASED
     Dosage: FREQ:EVERYDAY
     Route: 047
  2. MULTIVITAMIN [Concomitant]
  3. CALCIUM CHLORIDE [Concomitant]

REACTIONS (2)
  - CATARACT [None]
  - VISION BLURRED [None]
